FAERS Safety Report 17545941 (Version 1)
Quarter: 2020Q1

REPORT INFORMATION
  Report Type: Spontaneous
  Country: FR (occurrence: FR)
  Receive Date: 20200316
  Receipt Date: 20200316
  Transmission Date: 20200409
  Serious: Yes (Hospitalization)
  Sender: FDA-Public Use
  Company Number: FR-TEVA-2020-FR-1200366

PATIENT
  Age: 52 Year
  Sex: Male
  Weight: 119 kg

DRUGS (3)
  1. AUGMENTIN [Suspect]
     Active Substance: AMOXICILLIN\CLAVULANATE POTASSIUM
     Indication: SUPERINFECTION
     Dosage: VO FROM 05/02 TO 08/02 THEN IV ON 10/02
     Dates: start: 20200201, end: 20200210
  2. PARACETAMOL [Concomitant]
     Active Substance: ACETAMINOPHEN
     Indication: SUPERINFECTION
     Route: 048
     Dates: start: 20200201
  3. IBUPROFENE [Suspect]
     Active Substance: IBUPROFEN
     Indication: SUPERINFECTION
     Route: 048
     Dates: start: 20200201, end: 20200208

REACTIONS (1)
  - Rash erythematous [Recovered/Resolved]

NARRATIVE: CASE EVENT DATE: 20200210
